FAERS Safety Report 8917494 (Version 1)
Quarter: 2012Q4

REPORT INFORMATION
  Report Type: 
  Country: IT (occurrence: IT)
  Receive Date: 20121120
  Receipt Date: 20121120
  Transmission Date: 20130627
  Serious: Yes (Other)
  Sender: FDA-Public Use
  Company Number: IT-BRISTOL-MYERS SQUIBB COMPANY-17123662

PATIENT
  Sex: Female

DRUGS (1)
  1. ENTECAVIR [Suspect]

REACTIONS (1)
  - Hepatocellular carcinoma [Unknown]
